FAERS Safety Report 8530589-2 (Version None)
Quarter: 2012Q3

REPORT INFORMATION
  Report Type: 
  Country: None (occurrence: None)
  Receive Date: 20120703
  Receipt Date: 20120618
  Transmission Date: 20120928
  Serious: Yes (Hospitalization)
  Sender: FDA-Public Use
  Company Number: GAM-024-12-DE

PATIENT
  Age: 40 Year
  Sex: Male

DRUGS (8)
  1. VANCOMYCIN [Concomitant]
  2. PREDNISOLONE [Suspect]
     Indication: DIARRHOEA
     Dosage: 50 MG (1X 1/D) ORAL
     Route: 048
     Dates: start: 20110813, end: 20110923
  3. SULFAMETTHOXAZOLE AND TRIMETHOPRIM [Concomitant]
  4. OCTAGAM [Suspect]
     Indication: INFECTION
     Dosage: 10 G (1X 1/D) INTRAVENOUS (NOT OTHERWISE SPECIFIED)
     Route: 042
     Dates: start: 20110723, end: 20110813
  5. OMEPRAZOLE [Concomitant]
  6. MESALAMINE [Concomitant]
  7. LEVOFLOXACIN [Concomitant]
  8. FLUCONAZOLE [Concomitant]

REACTIONS (18)
  - PYREXIA [None]
  - HYPERHOMOCYSTEINAEMIA [None]
  - ARTERIAL THROMBOSIS LIMB [None]
  - TOE AMPUTATION [None]
  - THROMBOANGIITIS OBLITERANS [None]
  - IMPAIRED HEALING [None]
  - INFECTION [None]
  - COLITIS ULCERATIVE [None]
  - HYPERCOAGULATION [None]
  - PAIN IN EXTREMITY [None]
  - NASOPHARYNGITIS [None]
  - FEMORAL ARTERY OCCLUSION [None]
  - LIPOPROTEIN (A) INCREASED [None]
  - COAGULATION FACTOR VIII LEVEL INCREASED [None]
  - HYPERFIBRINOGENAEMIA [None]
  - DIARRHOEA [None]
  - ACQUIRED PROTEIN S DEFICIENCY [None]
  - FOOT AMPUTATION [None]
